FAERS Safety Report 22332146 (Version 2)
Quarter: 2023Q2

REPORT INFORMATION
  Report Type: Report from Study
  Country: IN (occurrence: IN)
  Receive Date: 20230517
  Receipt Date: 20230607
  Transmission Date: 20230721
  Serious: Yes (Other)
  Sender: FDA-Public Use
  Company Number: IN-ASTELLAS-2023US014564

PATIENT
  Age: 35 Year
  Sex: Female

DRUGS (6)
  1. ISAVUCONAZOLE [Suspect]
     Active Substance: ISAVUCONAZOLE
     Indication: Mucormycosis
     Dosage: 200 MG, ONCE DAILY (100MG 2-0, AS REPORTED)
     Route: 048
     Dates: start: 20230407
  2. ISAVUCONAZOLE [Suspect]
     Active Substance: ISAVUCONAZOLE
     Route: 048
     Dates: start: 20230417
  3. ISAVUCONAZOLE [Suspect]
     Active Substance: ISAVUCONAZOLE
     Indication: Mucormycosis
     Route: 042
     Dates: start: 20230403, end: 20230404
  4. ISAVUCONAZOLE [Suspect]
     Active Substance: ISAVUCONAZOLE
     Route: 042
     Dates: start: 20230405, end: 20230406
  5. MINOZ [Concomitant]
     Indication: Product used for unknown indication
     Route: 065
  6. COLISTIN [Concomitant]
     Active Substance: COLISTIN
     Indication: Product used for unknown indication
     Dosage: INJ COLISTIN 1ML DILUTED IN STERILE WATER ADD IN 250 CC NS FOR LOAD (ILLEGIBLE) X 7 DAYS FOR LOCAL
     Route: 065

REACTIONS (9)
  - Blood creatine increased [Unknown]
  - C-reactive protein increased [Unknown]
  - Blood potassium increased [Unknown]
  - Alanine aminotransferase decreased [Unknown]
  - Haemoglobin decreased [Unknown]
  - Cough [Unknown]
  - Swelling face [Unknown]
  - Nausea [Unknown]
  - Off label use [Unknown]

NARRATIVE: CASE EVENT DATE: 20230411
